FAERS Safety Report 20846515 (Version 5)
Quarter: 2022Q3

REPORT INFORMATION
  Report Type: Report from Study
  Country: US (occurrence: US)
  Receive Date: 20220518
  Receipt Date: 20220902
  Transmission Date: 20221027
  Serious: Yes (Other)
  Sender: FDA-Public Use
  Company Number: US-ABBVIE-22K-163-4398031-00

PATIENT
  Sex: Female

DRUGS (2)
  1. RINVOQ [Suspect]
     Active Substance: UPADACITINIB
     Indication: Rheumatoid arthritis
     Route: 048
  2. PFIZER-BIONTECH COVID-19 VACCINE [Concomitant]
     Active Substance: TOZINAMERAN
     Indication: COVID-19 immunisation
     Route: 030

REACTIONS (10)
  - Loss of consciousness [Recovering/Resolving]
  - Fall [Recovering/Resolving]
  - Foot fracture [Unknown]
  - Contusion [Unknown]
  - Erythema [Unknown]
  - Pain [Unknown]
  - Fluid intake reduced [Unknown]
  - Dry throat [Unknown]
  - Malaise [Unknown]
  - Cough [Unknown]
